FAERS Safety Report 11702047 (Version 1)
Quarter: 2015Q4

REPORT INFORMATION
  Report Type: Spontaneous
  Country: AU (occurrence: AU)
  Receive Date: 20151105
  Receipt Date: 20151105
  Transmission Date: 20160304
  Serious: Yes (Hospitalization, Other)
  Sender: FDA-Public Use
  Company Number: AU-BRISTOL-MYERS SQUIBB COMPANY-BMS-2015-076710

PATIENT
  Age: 84 Year
  Sex: Female

DRUGS (1)
  1. DASATINIB [Suspect]
     Active Substance: DASATINIB
     Indication: CHRONIC MYELOID LEUKAEMIA
     Dosage: 100 MG, QD
     Route: 065
     Dates: start: 201310

REACTIONS (7)
  - Haemoglobin decreased [Unknown]
  - Transfusion [Unknown]
  - Enterococcal sepsis [Unknown]
  - Platelet dysfunction [Unknown]
  - Gastrointestinal angiodysplasia haemorrhagic [Unknown]
  - Melaena [Recovered/Resolved]
  - Platelet count decreased [Unknown]
